FAERS Safety Report 9619290 (Version 1)
Quarter: 2013Q4

REPORT INFORMATION
  Report Type: Spontaneous
  Country: US (occurrence: US)
  Receive Date: 20131014
  Receipt Date: 20131014
  Transmission Date: 20140711
  Serious: Yes (Life-Threatening, Other)
  Sender: FDA-Public Use
  Company Number: US-ELI_LILLY_AND_COMPANY-US201310003217

PATIENT
  Age: 70 Year
  Sex: Male

DRUGS (3)
  1. INSULIN HUMAN [Suspect]
     Indication: BLOOD GLUCOSE INCREASED
  2. INSULIN HUMAN [Suspect]
     Indication: TYPE 2 DIABETES MELLITUS
  3. INSULIN [Concomitant]
     Dosage: UNK
     Route: 042

REACTIONS (2)
  - Cardiac arrest [Unknown]
  - Hypoglycaemia [Unknown]
